FAERS Safety Report 25814285 (Version 1)
Quarter: 2025Q3

REPORT INFORMATION
  Report Type: Spontaneous
  Country: US (occurrence: US)
  Receive Date: 20250917
  Receipt Date: 20250917
  Transmission Date: 20251020
  Serious: No
  Sender: MERCK SHARP & DOHME LLC
  Company Number: US-009507513-2329603

PATIENT
  Age: 80 Year
  Sex: Female

DRUGS (11)
  1. BELSOMRA [Suspect]
     Active Substance: SUVOREXANT
     Indication: Sleep disorder
     Dosage: 5MG/ONCE DAILY NOW SHE TWO TABLETS TO MAKE IT 10MG
     Route: 048
     Dates: start: 202509
  2. AMBIEN [Suspect]
     Active Substance: ZOLPIDEM TARTRATE
     Indication: Sleep disorder
  3. CELEBREX [Concomitant]
     Active Substance: CELECOXIB
  4. GABAPENTIN [Concomitant]
     Active Substance: GABAPENTIN
  5. TRAMADOL [Concomitant]
     Active Substance: TRAMADOL
  6. ROSUVASTATIN [Concomitant]
     Active Substance: ROSUVASTATIN
  7. LOSARTAN [Concomitant]
     Active Substance: LOSARTAN
  8. EZETIMIBE [Concomitant]
     Active Substance: EZETIMIBE
  9. calcium vitamin [Concomitant]
  10. ASPIRIN [Concomitant]
     Active Substance: ASPIRIN
  11. women^s day multi vitamin [Concomitant]

REACTIONS (3)
  - Therapy partial responder [Not Recovered/Not Resolved]
  - Tinnitus [Not Recovered/Not Resolved]
  - Dysphonia [Not Recovered/Not Resolved]

NARRATIVE: CASE EVENT DATE: 20250901
